FAERS Safety Report 13541450 (Version 2)
Quarter: 2017Q2

REPORT INFORMATION
  Report Type: Spontaneous
  Country: US (occurrence: US)
  Receive Date: 20170512
  Receipt Date: 20170522
  Transmission Date: 20170830
  Serious: Yes (Other)
  Sender: FDA-Public Use
  Company Number: US-PFIZER INC-2017204132

PATIENT
  Age: 71 Year
  Sex: Female

DRUGS (1)
  1. FLUCONAZOLE. [Suspect]
     Active Substance: FLUCONAZOLE
     Indication: ANTIFUNGAL TREATMENT
     Dosage: UNK

REACTIONS (1)
  - Platelet count decreased [Unknown]
